FAERS Safety Report 4491689-X (Version None)
Quarter: 2004Q4

REPORT INFORMATION
  Report Type: 
  Country: None (occurrence: None)
  Receive Date: 20041103
  Receipt Date: 20020614
  Transmission Date: 20050328
  Serious: Yes (Death, Other)
  Sender: FDA-Public Use
  Company Number: US-MERCK-0206USA01525

PATIENT
  Age: 78 Year
  Sex: Female

DRUGS (3)
  1. TIMOPTIC-XE [Suspect]
     Indication: GLAUCOMA
     Route: 047
  2. ALPHAGAN [Concomitant]
     Route: 065
  3. XALATAN [Concomitant]
     Route: 065

REACTIONS (13)
  - ADVERSE EVENT [None]
  - ANOREXIA [None]
  - ASTHENIA [None]
  - DEATH [None]
  - FUNGAL INFECTION [None]
  - GASTROINTESTINAL DISORDER [None]
  - HAEMOGLOBIN DECREASED [None]
  - OEDEMA PERIPHERAL [None]
  - PAIN IN EXTREMITY [None]
  - PELVIC MASS [None]
  - SKIN DISCOLOURATION [None]
  - TREMOR [None]
  - VOMITING [None]
